FAERS Safety Report 10738526 (Version 2)
Quarter: 2015Q1

REPORT INFORMATION
  Report Type: Spontaneous
  Country: US (occurrence: US)
  Receive Date: 20150126
  Receipt Date: 20150212
  Transmission Date: 20150721
  Serious: Yes (Hospitalization, Other)
  Sender: FDA-Public Use
  Company Number: US-TEVA-535742USA

PATIENT
  Age: 13 Year
  Sex: Male
  Weight: 52.21 kg

DRUGS (8)
  1. AMIKACIN [Suspect]
     Active Substance: AMIKACIN
     Indication: MYCOBACTERIAL INFECTION
     Dosage: TWICE DAILY VIA NEBULIZER
     Route: 055
     Dates: start: 20130227, end: 20130710
  2. TYGACIL [Suspect]
     Active Substance: TIGECYCLINE
     Indication: MYCOBACTERIAL INFECTION
     Dosage: ADD SALINE TO MIX, VIA IV EVERY 12 HOURS
     Route: 042
     Dates: start: 201411, end: 20141204
  3. MEROPENEM. [Suspect]
     Active Substance: MEROPENEM
     Indication: MYCOBACTERIAL INFECTION
     Route: 042
     Dates: start: 20130227, end: 20130710
  4. ZITHROMAX [Concomitant]
     Active Substance: AZITHROMYCIN DIHYDRATE
     Dates: start: 20141022
  5. CAYSTON [Concomitant]
     Active Substance: AZTREONAM
     Indication: CYSTIC FIBROSIS
     Dosage: 3 TIMES DAILY VIA NEBULIZER
     Route: 055
  6. ZYVOX [Concomitant]
     Active Substance: LINEZOLID
     Dosage: 600 MG/300ML; TWICE DAILY VIA PIC LINE
     Dates: start: 20141205
  7. PULMOZYME [Concomitant]
     Active Substance: DORNASE ALFA
     Indication: SECRETION DISCHARGE
     Dosage: 2.5 ML AMPULES; ONCE DAILY VIA NEBULIZER
     Dates: start: 20050701
  8. CEFOXITIN [Concomitant]
     Active Substance: CEFOXITIN\CEFOXITIN SODIUM
     Indication: MYCOBACTERIAL INFECTION
     Dosage: 3 GM/100 ML NS EVERY 8 HOURS VIA PIC LINE
     Dates: start: 20141022

REACTIONS (7)
  - Cystic fibrosis [Not Recovered/Not Resolved]
  - Diarrhoea [Recovered/Resolved]
  - Deafness [Not Recovered/Not Resolved]
  - Decreased appetite [Recovering/Resolving]
  - Incorrect route of drug administration [Unknown]
  - Weight decreased [Recovered/Resolved]
  - Nausea [Recovered/Resolved]

NARRATIVE: CASE EVENT DATE: 20130227
